FAERS Safety Report 20083958 (Version 3)
Quarter: 2022Q2

REPORT INFORMATION
  Report Type: Spontaneous
  Country: FR (occurrence: FR)
  Receive Date: 20211118
  Receipt Date: 20220509
  Transmission Date: 20220721
  Serious: Yes (Other)
  Sender: FDA-Public Use
  Company Number: FR-JNJFOC-20210522130

PATIENT
  Age: 76 Year
  Sex: Male
  Weight: 76 kg

DRUGS (14)
  1. FUROSEMIDE [Suspect]
     Active Substance: FUROSEMIDE
     Indication: Pericardial effusion
     Dosage: 40 MILLIGRAM
     Route: 065
  2. FUROSEMIDE [Suspect]
     Active Substance: FUROSEMIDE
     Dosage: 20 MILLIGRAM
     Route: 065
  3. SELEXIPAG [Suspect]
     Active Substance: SELEXIPAG
     Indication: Pulmonary arterial hypertension
     Dosage: 1600 MICROGRAM, ONCE A DAY
     Route: 048
  4. SELEXIPAG [Suspect]
     Active Substance: SELEXIPAG
     Dosage: 400 MICROGRAM, ONCE A DAY
     Route: 048
     Dates: start: 20210505
  5. SELEXIPAG [Suspect]
     Active Substance: SELEXIPAG
     Dosage: 800 MICROGRAM, ONCE A DAY
     Route: 048
     Dates: start: 20210512
  6. SELEXIPAG [Suspect]
     Active Substance: SELEXIPAG
     Dosage: 1200 MICROGRAM, ONCE A DAY
     Route: 048
     Dates: start: 20210519
  7. SELEXIPAG [Suspect]
     Active Substance: SELEXIPAG
     Dosage: 1600 MICROGRAM, ONCE A DAY
     Route: 048
     Dates: start: 20210526
  8. SELEXIPAG [Suspect]
     Active Substance: SELEXIPAG
     Dosage: 2000 MICROGRAM, ONCE A DAY
     Route: 048
     Dates: start: 20210602
  9. SELEXIPAG [Suspect]
     Active Substance: SELEXIPAG
     Dosage: 2400 MICROGRAM, ONCE A DAY
     Route: 048
     Dates: start: 20210609
  10. SELEXIPAG [Suspect]
     Active Substance: SELEXIPAG
     Dosage: 2800 MICROGRAM, ONCE A DAY
     Route: 048
     Dates: start: 20210616
  11. SELEXIPAG [Suspect]
     Active Substance: SELEXIPAG
     Dosage: 3200 MICROGRAM, ONCE A DAY
     Route: 048
     Dates: start: 20210623
  12. COVID-19 VACCINE NOS [Suspect]
     Active Substance: COVID-19 VACCINE NOS
     Indication: COVID-19 prophylaxis
     Dosage: UNK
     Route: 065
     Dates: start: 20210510
  13. AMBRISENTAN [Concomitant]
     Active Substance: AMBRISENTAN
     Indication: Pulmonary arterial hypertension
     Dosage: UNK
     Route: 065
  14. TADALAFIL [Concomitant]
     Active Substance: TADALAFIL
     Indication: Pulmonary arterial hypertension
     Dosage: UNK
     Route: 065

REACTIONS (16)
  - Blood glucose increased [Recovered/Resolved]
  - Bradycardia [Recovered/Resolved]
  - Cough [Recovered/Resolved]
  - Diarrhoea [Not Recovered/Not Resolved]
  - Dyskinesia [Not Recovered/Not Resolved]
  - Dyspnoea [Unknown]
  - Fatigue [Not Recovered/Not Resolved]
  - Glycosylated haemoglobin increased [Not Recovered/Not Resolved]
  - Hypertension [Recovered/Resolved]
  - Headache [Not Recovered/Not Resolved]
  - Hypotension [Recovered/Resolved]
  - Muscle spasms [Recovered/Resolved]
  - Nasal obstruction [Not Recovered/Not Resolved]
  - Pericardial effusion [Unknown]
  - Polydipsia [Not Recovered/Not Resolved]
  - Weight decreased [Not Recovered/Not Resolved]

NARRATIVE: CASE EVENT DATE: 20210101
